FAERS Safety Report 14759304 (Version 1)
Quarter: 2018Q2

REPORT INFORMATION
  Report Type: Spontaneous
  Country: US (occurrence: US)
  Receive Date: 20180413
  Receipt Date: 20180413
  Transmission Date: 20180711
  Serious: Yes (Other)
  Sender: FDA-Public Use
  Company Number: US-FRESENIUS KABI-FK201804391

PATIENT
  Sex: Female

DRUGS (3)
  1. DILAUDID [Suspect]
     Active Substance: HYDROMORPHONE HYDROCHLORIDE
     Indication: DRUG DEPENDENCE
     Route: 042
     Dates: start: 201510, end: 20170220
  2. HEROIN [Suspect]
     Active Substance: DIAMORPHINE
     Indication: DRUG DEPENDENCE
     Route: 042
     Dates: start: 201510, end: 20170220
  3. FENTANYL. [Suspect]
     Active Substance: FENTANYL
     Indication: DRUG DEPENDENCE
     Route: 042
     Dates: start: 201510, end: 20170220

REACTIONS (6)
  - Fatigue [Unknown]
  - Suicidal ideation [Unknown]
  - Dependence [Unknown]
  - Substance dependence [Recovered/Resolved]
  - Overdose [Unknown]
  - Insomnia [Unknown]

NARRATIVE: CASE EVENT DATE: 201510
